FAERS Safety Report 4911704-6 (Version None)
Quarter: 2006Q1

REPORT INFORMATION
  Report Type: 
  Country: None (occurrence: None)
  Receive Date: 20060213
  Receipt Date: 20060206
  Transmission Date: 20060701
  Serious: Yes (Other)
  Sender: FDA-Public Use
  Company Number: 2006018647

PATIENT
  Sex: Female

DRUGS (4)
  1. LIPITOR [Suspect]
     Indication: BLOOD CHOLESTEROL INCREASED
     Dosage: (40 MG, DAILY)
  2. CAPTOPRIL [Suspect]
  3. FLUOXETINE [Concomitant]
  4. ATENOLOL [Concomitant]

REACTIONS (5)
  - ALOPECIA [None]
  - BREAST CANCER FEMALE [None]
  - LYMPHOMA [None]
  - TOOTH LOSS [None]
  - WEIGHT DECREASED [None]
